FAERS Safety Report 19721864 (Version 1)
Quarter: 2021Q3

REPORT INFORMATION
  Report Type: Spontaneous
  Country: IT (occurrence: IT)
  Receive Date: 20210819
  Receipt Date: 20210819
  Transmission Date: 20211014
  Serious: Yes (Life-Threatening, Hospitalization)
  Sender: FDA-Public Use
  Company Number: IT-MYLANLABS-2021M1053066

PATIENT
  Age: 70 Year
  Sex: Female

DRUGS (16)
  1. EPINEPHRINE. [Suspect]
     Active Substance: EPINEPHRINE
     Indication: RESUSCITATION
  2. CEFTRIAXONE. [Concomitant]
     Active Substance: CEFTRIAXONE
     Indication: MENINGOCOCCAL INFECTION
     Dosage: UNK
     Route: 065
  3. HYDROCORTISONE. [Suspect]
     Active Substance: HYDROCORTISONE
     Indication: MENINGOCOCCAL SEPSIS
  4. EPINEPHRINE. [Suspect]
     Active Substance: EPINEPHRINE
     Indication: MENINGOCOCCAL SEPSIS
  5. DOBUTAMINE [Suspect]
     Active Substance: DOBUTAMINE HYDROCHLORIDE
     Indication: MENINGOCOCCAL SEPSIS
  6. HYDROCORTISONE. [Suspect]
     Active Substance: HYDROCORTISONE
     Indication: MENINGOCOCCAL INFECTION
  7. NORADRENALINE                      /00127501/ [Suspect]
     Active Substance: NOREPINEPHRINE
     Indication: MENINGOCOCCAL INFECTION
  8. NORADRENALINE                      /00127501/ [Suspect]
     Active Substance: NOREPINEPHRINE
     Indication: RESUSCITATION
  9. DOBUTAMINE [Suspect]
     Active Substance: DOBUTAMINE HYDROCHLORIDE
     Indication: WATERHOUSE-FRIDERICHSEN SYNDROME
     Dosage: 6 MICROGRAM/KILOGRAM, QMINUTE
     Route: 065
  10. NORADRENALINE                      /00127501/ [Suspect]
     Active Substance: NOREPINEPHRINE
     Indication: WATERHOUSE-FRIDERICHSEN SYNDROME
     Dosage: 1 MICROGRAM/KILOGRAM, QMINUTE
     Route: 065
  11. DOBUTAMINE [Suspect]
     Active Substance: DOBUTAMINE HYDROCHLORIDE
     Indication: MENINGOCOCCAL INFECTION
  12. HYDROCORTISONE. [Suspect]
     Active Substance: HYDROCORTISONE
     Indication: WATERHOUSE-FRIDERICHSEN SYNDROME
     Route: 065
  13. EPINEPHRINE. [Suspect]
     Active Substance: EPINEPHRINE
     Indication: MENINGOCOCCAL INFECTION
  14. DOBUTAMINE [Suspect]
     Active Substance: DOBUTAMINE HYDROCHLORIDE
     Indication: RESUSCITATION
  15. EPINEPHRINE. [Suspect]
     Active Substance: EPINEPHRINE
     Indication: WATERHOUSE-FRIDERICHSEN SYNDROME
     Dosage: 0.5 MICROGRAM/KILOGRAM, QMINUTE
     Route: 065
  16. VANCOMYCIN [Concomitant]
     Active Substance: VANCOMYCIN
     Indication: MENINGOCOCCAL INFECTION
     Route: 065

REACTIONS (1)
  - Drug ineffective [Unknown]
